FAERS Safety Report 14124914 (Version 8)
Quarter: 2018Q1

REPORT INFORMATION
  Report Type: Spontaneous
  Country: TW (occurrence: TW)
  Receive Date: 20171025
  Receipt Date: 20180307
  Transmission Date: 20180508
  Serious: Yes (Life-Threatening, Hospitalization, Other)
  Sender: FDA-Public Use
  Company Number: TW-BRISTOL-MYERS SQUIBB COMPANY-BMS-2017-095771

PATIENT
  Age: 51 Year
  Sex: Male
  Weight: 62 kg

DRUGS (1)
  1. OPDIVO [Suspect]
     Active Substance: NIVOLUMAB
     Indication: HEPATOCELLULAR CARCINOMA
     Dosage: 200 MG, Q2WK
     Route: 042
     Dates: start: 20170530

REACTIONS (12)
  - Portal hypertensive gastropathy [Unknown]
  - Pain [Recovered/Resolved]
  - Haematemesis [Recovered/Resolved]
  - Dizziness [Unknown]
  - Product use in unapproved indication [Unknown]
  - Discomfort [Unknown]
  - Pyrexia [Recovering/Resolving]
  - Sepsis [Unknown]
  - Oesophageal varices haemorrhage [Unknown]
  - Rash [Recovering/Resolving]
  - Metastases to bone [Unknown]
  - Blister [Recovering/Resolving]

NARRATIVE: CASE EVENT DATE: 20171017
